FAERS Safety Report 17686199 (Version 2)
Quarter: 2020Q2

REPORT INFORMATION
  Report Type: Spontaneous
  Country: US (occurrence: US)
  Receive Date: 20200420
  Receipt Date: 20200511
  Transmission Date: 20200714
  Serious: Yes (Death, Other)
  Sender: FDA-Public Use
  Company Number: US-WEST THERAPEUTIC DEVELOPMENT-2020WTD00010

PATIENT
  Age: 34 Year
  Sex: Female

DRUGS (34)
  1. OPANA IR (IMMEDIATE RELEASE) [Concomitant]
     Dosage: 10 MG, 3X/DAY (EVERY 8 HOURS)
  2. DECADRON [Concomitant]
     Active Substance: DEXAMETHASONE
     Dosage: 25 MG
     Route: 030
     Dates: start: 20180504, end: 20180504
  3. TORADOL [Concomitant]
     Active Substance: KETOROLAC TROMETHAMINE
     Dosage: 60 MG; EVERY MONTH OR EVERY OTHER MONTH
     Route: 030
  4. TORADOL [Concomitant]
     Active Substance: KETOROLAC TROMETHAMINE
     Dosage: 60 MG
     Route: 030
     Dates: start: 20180504, end: 20180504
  5. MEDROL [Concomitant]
     Active Substance: METHYLPREDNISOLONE
  6. SUBSYS [Suspect]
     Active Substance: FENTANYL
     Indication: COMPLEX REGIONAL PAIN SYNDROME
  7. SUBSYS [Suspect]
     Active Substance: FENTANYL
     Indication: PAIN
  8. XANAX [Suspect]
     Active Substance: ALPRAZOLAM
  9. BUTRANS PATCHES [Concomitant]
  10. DILAUDID [Concomitant]
     Active Substance: HYDROMORPHONE HYDROCHLORIDE
     Dosage: 4 MG, 6X/DAY (EVERY 4 HOURS)
     Route: 048
     Dates: start: 20180504
  11. WELLBUTRIN [Concomitant]
     Active Substance: BUPROPION HYDROCHLORIDE
  12. SUBSYS [Suspect]
     Active Substance: FENTANYL
     Indication: FIBROMYALGIA
     Dosage: 600 ?G, 6X/DAY (EVERY 4 HOURS) AS NEEDED
     Route: 060
     Dates: start: 20180508, end: 20180926
  13. METHADONE [Concomitant]
     Active Substance: METHADONE HYDROCHLORIDE
     Dosage: UNK
     Dates: start: 2014, end: 2015
  14. BELSOMRA [Concomitant]
     Active Substance: SUVOREXANT
     Dosage: 20 MG, 1X/DAY, AT BEDTIME
  15. ATIVAN [Concomitant]
     Active Substance: LORAZEPAM
     Dosage: 1 MG
     Route: 030
     Dates: start: 20180504, end: 20180504
  16. SUBSYS [Suspect]
     Active Substance: FENTANYL
     Indication: COMPLEX REGIONAL PAIN SYNDROME
  17. SUBSYS [Suspect]
     Active Substance: FENTANYL
     Indication: PAIN
  18. OXYMORPHONE [Concomitant]
     Active Substance: OXYMORPHONE
  19. DILAUDID [Concomitant]
     Active Substance: HYDROMORPHONE HYDROCHLORIDE
     Dosage: 8 MG, 6X/DAY (EVERY 4 HOURS)
     Route: 048
     Dates: start: 20180504
  20. DECADRON [Concomitant]
     Active Substance: DEXAMETHASONE
     Dosage: 20 MG
     Route: 030
     Dates: start: 20180828, end: 20180828
  21. ATIVAN [Concomitant]
     Active Substance: LORAZEPAM
     Dosage: 1 MG; EVERY MONTH OR EVERY OTHER MONTH
     Route: 030
  22. SUBSYS [Suspect]
     Active Substance: FENTANYL
     Indication: PAIN
  23. SOMA [Suspect]
     Active Substance: CARISOPRODOL
  24. TORADOL [Concomitant]
     Active Substance: KETOROLAC TROMETHAMINE
     Dosage: 60 MG
     Route: 030
     Dates: start: 20180828, end: 20180828
  25. SUBSYS [Suspect]
     Active Substance: FENTANYL
     Indication: COMPLEX REGIONAL PAIN SYNDROME
  26. ADDERALL [Concomitant]
     Active Substance: AMPHETAMINE ASPARTATE\AMPHETAMINE SULFATE\DEXTROAMPHETAMINE SACCHARATE\DEXTROAMPHETAMINE SULFATE
  27. DECADRON [Concomitant]
     Active Substance: DEXAMETHASONE
     Dosage: BETWEEN 15 AND 25 MG; EVERY MONTH OR EVERY OTHER MONTH
     Route: 030
  28. ATIVAN [Concomitant]
     Active Substance: LORAZEPAM
     Dosage: 1 MG
     Route: 030
     Dates: start: 20180828, end: 20180828
  29. PERCOCET [Concomitant]
     Active Substance: ACETAMINOPHEN\OXYCODONE HYDROCHLORIDE
  30. OPANA IR (IMMEDIATE RELEASE) [Concomitant]
     Dosage: 20 MG, 3X/DAY (EVERY 8 HOURS)
  31. LEVORPHANOL [Concomitant]
     Active Substance: LEVORPHANOL
  32. SUBSYS [Suspect]
     Active Substance: FENTANYL
     Indication: FIBROMYALGIA
     Dosage: UNK
     Dates: start: 2014
  33. SUBSYS [Suspect]
     Active Substance: FENTANYL
     Indication: FIBROMYALGIA
     Dosage: 400 ?G, 6X/DAY (EVERY 4 HOURS) AS NEEDED
     Route: 060
     Dates: start: 20180418, end: 20180430
  34. VALIUM [Concomitant]
     Active Substance: DIAZEPAM

REACTIONS (15)
  - Suicidal ideation [Unknown]
  - Overdose [Fatal]
  - Cachexia [Unknown]
  - Photophobia [Unknown]
  - Swelling face [Recovering/Resolving]
  - Blood immunoglobulin M decreased [Unknown]
  - Pelvic deformity [Unknown]
  - Drug ineffective for unapproved indication [Recovered/Resolved]
  - Interleukin level increased [Unknown]
  - Paraesthesia [Unknown]
  - Pallor [Unknown]
  - Nausea [Unknown]
  - Fatigue [Unknown]
  - Weight decreased [Unknown]
  - Headache [Unknown]

NARRATIVE: CASE EVENT DATE: 2017
